FAERS Safety Report 10248461 (Version 1)
Quarter: 2014Q2

REPORT INFORMATION
  Report Type: Spontaneous
  Country: US (occurrence: US)
  Receive Date: 20140620
  Receipt Date: 20140620
  Transmission Date: 20141212
  Serious: Yes (Other)
  Sender: FDA-Public Use
  Company Number: US-AMGEN INC.-USASP2014045976

PATIENT
  Age: 66 Year
  Sex: Female
  Weight: 68.03 kg

DRUGS (26)
  1. ENBREL [Suspect]
     Indication: PRODUCT USED FOR UNKNOWN INDICATION
     Dosage: 50 MG, QWK
     Route: 058
  2. HUMIRA [Suspect]
     Indication: PRODUCT USED FOR UNKNOWN INDICATION
     Dosage: UNK
     Route: 065
  3. CELEBREX [Concomitant]
     Dosage: 200 MG, UNK
  4. VOLTAREN                           /00372301/ [Concomitant]
     Dosage: 25 MG, UNK
  5. FLUCONAZOLE [Concomitant]
     Dosage: 100 MG, UNK
  6. FUROSEMIDE [Concomitant]
     Dosage: 40 MG, UNK
  7. HYDROMORPHONE [Concomitant]
     Dosage: 2 MG, UNK
  8. SYSTANE [Concomitant]
     Dosage: UNK
  9. VIVELLE                            /00045401/ [Concomitant]
     Dosage: 0.1 MG, UNK
  10. AFRIN                              /00070001/ [Concomitant]
     Dosage: 0.05 %, UNK
  11. SUMATRIPTAN [Concomitant]
     Dosage: 50 MG, UNK
  12. ATENOLOL [Concomitant]
     Dosage: 25 MG, UNK
  13. CLONAZEPAM [Concomitant]
     Dosage: 0.5 MG, UNK
  14. CLINDAMYCIN [Concomitant]
     Dosage: 150 MG, UNK
  15. FOSINOPRIL [Concomitant]
     Dosage: 10 MG, UNK
  16. RANITIDINE [Concomitant]
     Dosage: 75 MG, UNK
  17. PROMETHAZINE [Concomitant]
     Dosage: 25 MG, UNK
  18. NYSTATIN [Concomitant]
     Dosage: CRE 100000
  19. LEVOTHYROXIN [Concomitant]
     Dosage: 25 MUG, UNK
  20. NEXIUM                             /01479302/ [Concomitant]
     Dosage: 40 MG, UNK
  21. LUNESTA [Concomitant]
     Dosage: 1 MG, UNK
  22. L METHYLFOLATE [Concomitant]
     Dosage: 15
  23. ADDERALL [Concomitant]
     Dosage: 15 MG, UNK
  24. MAALOX                             /00082501/ [Concomitant]
     Dosage: UNK
  25. VITAMIN D2 [Concomitant]
     Dosage: 400 UNIT, UNK
  26. DOXYCYCLINE [Concomitant]
     Dosage: 75 MG, UNK

REACTIONS (6)
  - Bladder prolapse [Unknown]
  - Urethral repair [Unknown]
  - Pelvic discomfort [Unknown]
  - Pain [Unknown]
  - Spinal disorder [Unknown]
  - Therapeutic response decreased [Unknown]
